FAERS Safety Report 4459233-0 (Version None)
Quarter: 2004Q3

REPORT INFORMATION
  Report Type: 
  Country: None (occurrence: None)
  Receive Date: 20040927
  Receipt Date: 20040916
  Transmission Date: 20050211
  Serious: Yes (Hospitalization, Other)
  Sender: FDA-Public Use
  Company Number: PHBS2004DE12336

PATIENT
  Age: 41 Year
  Sex: Male

DRUGS (2)
  1. CYCLOSPORINE [Suspect]
     Indication: RENAL TRANSPLANT
     Route: 065
  2. PREDNISONE [Concomitant]

REACTIONS (18)
  - ALPHA HYDROXYBUTYRATE DEHYDROGENASE INCREASED [None]
  - BLOOD AMYLASE INCREASED [None]
  - BLOOD CREATININE INCREASED [None]
  - BLOOD GLUCOSE INCREASED [None]
  - CHEST PAIN [None]
  - COMPLICATIONS OF TRANSPLANTED KIDNEY [None]
  - DYSPNOEA [None]
  - GENERAL PHYSICAL HEALTH DETERIORATION [None]
  - GLOMERULONEPHRITIS PROLIFERATIVE [None]
  - GRAFT LOSS [None]
  - HAEMATOCRIT DECREASED [None]
  - HAEMOGLOBIN DECREASED [None]
  - HAEMOTHORAX [None]
  - LIPASE INCREASED [None]
  - RED BLOOD CELL COUNT DECREASED [None]
  - THORACOTOMY [None]
  - THYMUS HYPERTROPHY [None]
  - TUMOUR HAEMORRHAGE [None]
